FAERS Safety Report 8244348-1 (Version None)
Quarter: 2012Q1

REPORT INFORMATION
  Report Type: 
  Country: None (occurrence: None)
  Receive Date: 20120329
  Receipt Date: 20120326
  Transmission Date: 20120608
  Serious: Yes (Disabling, Other)
  Sender: FDA-Public Use
  Company Number: US-PFIZER INC-2012040340

PATIENT
  Sex: Male
  Weight: 87.982 kg

DRUGS (5)
  1. XANAX [Suspect]
     Dosage: 1 MG, 2X/DAY
     Route: 048
     Dates: end: 20111201
  2. HYDROCODONE [Concomitant]
     Indication: BACK PAIN
     Dosage: ^10/60^ MG
  3. HYDROCODONE [Concomitant]
     Indication: PAIN IN EXTREMITY
  4. XANAX [Suspect]
     Indication: ANXIETY
     Dosage: 0.5 MG, UNK
     Route: 048
  5. HYDROCODONE [Concomitant]
     Indication: ARTHRALGIA

REACTIONS (7)
  - INSOMNIA [None]
  - AGITATION [None]
  - ACTIVITIES OF DAILY LIVING IMPAIRED [None]
  - DYSPNOEA [None]
  - PANIC ATTACK [None]
  - DISTURBANCE IN SOCIAL BEHAVIOUR [None]
  - DECREASED APPETITE [None]
